FAERS Safety Report 5226136-3 (Version None)
Quarter: 2007Q1

REPORT INFORMATION
  Report Type: 
  Country: None (occurrence: None)
  Receive Date: 20070201
  Receipt Date: 20070126
  Transmission Date: 20070707
  Serious: Yes (Other)
  Sender: FDA-Public Use
  Company Number: VN-GLAXOSMITHKLINE-B0456463A

PATIENT
  Age: 24 Year
  Sex: Female

DRUGS (9)
  1. BLINDED STUDY MEDICATION [Suspect]
     Indication: HIV INFECTION
     Route: 048
  2. COMBIVIR [Suspect]
     Indication: HIV INFECTION
     Dosage: 1TAB TWICE PER DAY
     Route: 048
     Dates: end: 20070102
  3. EFAVIRENZ [Suspect]
     Indication: HIV INFECTION
     Dosage: 600MG PER DAY
     Route: 048
     Dates: end: 20070102
  4. COTRIM [Suspect]
     Indication: TUBERCULOSIS
  5. ETHAMBUTOL HYDROCHLORIDE [Concomitant]
     Indication: TUBERCULOSIS
  6. DEXAMETHASONE TAB [Concomitant]
     Indication: TUBERCULOSIS
  7. STREPTOMYCIN [Concomitant]
     Indication: TUBERCULOSIS
  8. SIRIN [Concomitant]
     Indication: TUBERCULOSIS
  9. ENERVON C [Concomitant]

REACTIONS (2)
  - HEPATITIS [None]
  - PYREXIA [None]
